FAERS Safety Report 16970962 (Version 1)
Quarter: 2019Q4

REPORT INFORMATION
  Report Type: Spontaneous
  Country: US (occurrence: US)
  Receive Date: 20191029
  Receipt Date: 20191029
  Transmission Date: 20200122
  Serious: Yes (Hospitalization, Other)
  Sender: FDA-Public Use
  Company Number: US-SA-2019SA295448

PATIENT
  Age: 12 Year
  Sex: Female

DRUGS (1)
  1. DIPHENHYDRAMINE. [Suspect]
     Active Substance: DIPHENHYDRAMINE
     Dosage: 147 MG/KG; 7500 MG
     Route: 048

REACTIONS (7)
  - Ventricular tachycardia [Recovering/Resolving]
  - Defect conduction intraventricular [Recovering/Resolving]
  - Seizure [Unknown]
  - Intentional overdose [Recovering/Resolving]
  - Atrioventricular block second degree [Recovering/Resolving]
  - Ventricular dysfunction [Recovering/Resolving]
  - Ventricular arrhythmia [Recovering/Resolving]
